FAERS Safety Report 8264613-1 (Version None)
Quarter: 2012Q2

REPORT INFORMATION
  Report Type: 
  Country: None (occurrence: None)
  Receive Date: 20120406
  Receipt Date: 20120328
  Transmission Date: 20120825
  Serious: Yes (Hospitalization)
  Sender: FDA-Public Use
  Company Number: SE-ABBOTT-11P-150-0854972-00

PATIENT
  Sex: Female

DRUGS (6)
  1. ENBREL [Suspect]
     Indication: PSORIATIC ARTHROPATHY
     Route: 058
     Dates: start: 20090101, end: 20090923
  2. REMICADE [Suspect]
     Indication: PSORIATIC ARTHROPATHY
  3. METHOTREXATE [Concomitant]
     Indication: PRODUCT USED FOR UNKNOWN INDICATION
  4. ORUDIS RETARD PROLONGED-RELEASE CAPSULE, HARD [Concomitant]
     Indication: PRODUCT USED FOR UNKNOWN INDICATION
  5. ENALAPRIL [Concomitant]
     Indication: PRODUCT USED FOR UNKNOWN INDICATION
  6. HUMIRA [Suspect]
     Indication: PSORIATIC ARTHROPATHY

REACTIONS (10)
  - BACK PAIN [None]
  - STIFF PERSON SYNDROME [None]
  - MUSCLE SPASMS [None]
  - PAIN [None]
  - CONDITION AGGRAVATED [None]
  - MUSCULOSKELETAL STIFFNESS [None]
  - GAIT DISTURBANCE [None]
  - ANTI-GAD ANTIBODY POSITIVE [None]
  - CSF IMMUNOGLOBULIN INCREASED [None]
  - MUSCULAR WEAKNESS [None]
